FAERS Safety Report 7534497-5 (Version None)
Quarter: 2011Q2

REPORT INFORMATION
  Report Type: 
  Country: None (occurrence: None)
  Receive Date: 20110609
  Receipt Date: 20090513
  Transmission Date: 20111010
  Serious: Yes (Death, Hospitalization)
  Sender: FDA-Public Use
  Company Number: PHHY2009JP18634

PATIENT
  Sex: Male

DRUGS (11)
  1. SULPERAZONE [Concomitant]
     Dosage: 2 G, UNK
     Dates: start: 20081214, end: 20081218
  2. CIPROFLOXACIN HCL [Concomitant]
     Dates: start: 20081230, end: 20090111
  3. VALSARTAN [Suspect]
     Dosage: 40 MG, QD
     Route: 048
     Dates: start: 20080204, end: 20080326
  4. WARFARIN SODIUM [Concomitant]
     Dosage: 2.5 MG, UNK
     Route: 048
     Dates: start: 20080917
  5. FIRSTCIN [Concomitant]
     Dosage: 2 G, UNK
     Dates: start: 20081218, end: 20081222
  6. AMLODIPINE [Concomitant]
     Indication: HYPERTENSION
     Dosage: 5 MG, UNK
     Route: 048
     Dates: start: 20080917
  7. BISOPROLOL FUMARATE [Concomitant]
     Indication: HYPERTENSION
     Dosage: 5 MG, UNK
     Route: 048
     Dates: start: 20080917, end: 20090114
  8. TANATRIL [Concomitant]
     Indication: HYPERTENSION
     Route: 048
     Dates: start: 20080917
  9. LASIX [Concomitant]
     Dosage: 80 MG, UNK
     Route: 048
     Dates: start: 20080917
  10. VICCILLIN-S [Concomitant]
     Dates: start: 20090111
  11. MINOCYCLINE HCL [Concomitant]
     Route: 048
     Dates: start: 20081222, end: 20081229

REACTIONS (4)
  - AORTIC ANEURYSM [None]
  - PNEUMONIA [None]
  - HYPERGLYCAEMIA [None]
  - RENAL DISORDER [None]
